FAERS Safety Report 5055600-5 (Version None)
Quarter: 2006Q3

REPORT INFORMATION
  Report Type: 
  Country: None (occurrence: None)
  Receive Date: 20060714
  Receipt Date: 20060627
  Transmission Date: 20061208
  Serious: Yes (Hospitalization, Other)
  Sender: FDA-Public Use
  Company Number: US200605003094

PATIENT
  Age: 49 Year
  Sex: Male
  Weight: 71.7 kg

DRUGS (5)
  1. CIALIS [Suspect]
     Indication: ERECTILE DYSFUNCTION
     Dosage: SEE IMAGE
     Route: 048
     Dates: start: 20060401, end: 20060401
  2. CIALIS [Suspect]
     Indication: ERECTILE DYSFUNCTION
     Dosage: SEE IMAGE
     Route: 048
     Dates: start: 20060301, end: 20060512
  3. LITHIUM CARBONATE [Concomitant]
  4. PERCOCET [Concomitant]
  5. CARBAMAZEPINE [Concomitant]

REACTIONS (10)
  - EJACULATION FAILURE [None]
  - ESCHERICHIA INFECTION [None]
  - HAEMATURIA [None]
  - HEADACHE [None]
  - RENAL CYST [None]
  - RENAL CYST INFECTION [None]
  - THERAPEUTIC RESPONSE DECREASED [None]
  - URINARY TRACT INFECTION [None]
  - WHITE BLOOD CELL COUNT DECREASED [None]
  - WHITE BLOOD CELL COUNT INCREASED [None]
